FAERS Safety Report 21399973 (Version 1)
Quarter: 2022Q4

REPORT INFORMATION
  Report Type: Spontaneous
  Country: GB (occurrence: GB)
  Receive Date: 20221002
  Receipt Date: 20221002
  Transmission Date: 20230113
  Serious: Yes (Other)
  Sender: FDA-Public Use
  Company Number: GB-MHRA-MED-202209212158551970-FDLCK

PATIENT
  Age: 60 Year
  Sex: Male
  Weight: 70 kg

DRUGS (2)
  1. OFLOXACIN [Suspect]
     Active Substance: OFLOXACIN
     Indication: Adverse drug reaction
     Dosage: 400 MILLIGRAM DAILY; THERAPY END DATE :NASK, UNIT DOSE : 200 MG, FREQUENCY ; 2 , FREQUENCY TIME : 1
     Route: 065
     Dates: start: 20220914
  2. OFLOXACIN [Suspect]
     Active Substance: OFLOXACIN
     Indication: Infection

REACTIONS (1)
  - Muscle rupture [Not Recovered/Not Resolved]

NARRATIVE: CASE EVENT DATE: 20220921
